FAERS Safety Report 9366955 (Version 1)
Quarter: 2013Q2

REPORT INFORMATION
  Report Type: Report from Study
  Country: DK (occurrence: DE)
  Receive Date: 20130625
  Receipt Date: 20130625
  Transmission Date: 20140414
  Serious: Yes (Hospitalization)
  Sender: FDA-Public Use
  Company Number: DE-FRI-1000046081

PATIENT
  Sex: Female

DRUGS (14)
  1. CITALOPRAM [Suspect]
     Dosage: 10 MG
     Route: 048
     Dates: start: 20090724, end: 20090804
  2. CITALOPRAM [Suspect]
     Dosage: 20 MG
     Route: 048
     Dates: start: 20090805, end: 20090806
  3. CITALOPRAM [Suspect]
     Dosage: 40 MG
     Route: 048
     Dates: start: 20090807, end: 20090817
  4. DOMINAL [Suspect]
     Indication: INITIAL INSOMNIA
     Dosage: 80 MG
     Route: 048
     Dates: start: 20090723, end: 20090817
  5. AMLODIPIN [Suspect]
     Dosage: 5 MG
     Route: 048
     Dates: start: 20090807, end: 20090815
  6. AMLODIPIN [Suspect]
     Dosage: 5 MG
     Route: 048
     Dates: start: 20090829
  7. RAMIPRIL [Suspect]
     Dosage: 10 MG
     Route: 048
     Dates: end: 20090815
  8. RAMIPRIL [Suspect]
     Dosage: 2.5 MG
     Route: 048
     Dates: start: 20090817
  9. BISOPROLOL [Suspect]
     Dosage: 5 MG
     Route: 048
     Dates: end: 20090815
  10. BISOPROLOL [Suspect]
     Dosage: 2.5 MG
     Route: 048
     Dates: start: 20090816
  11. HCT HEXAL [Suspect]
     Dosage: 12.5 MG
     Route: 048
     Dates: end: 20090815
  12. ARICEPT [Concomitant]
     Dosage: 5 MG
     Route: 048
     Dates: start: 20090804, end: 20090813
  13. ARICEPT [Concomitant]
     Dosage: 10 MG
     Route: 048
     Dates: start: 20090814
  14. ASS [Concomitant]
     Route: 048

REACTIONS (3)
  - Hypotension [Recovered/Resolved]
  - Dizziness [Recovered/Resolved]
  - Dysarthria [Recovered/Resolved]
